FAERS Safety Report 15081194 (Version 7)
Quarter: 2020Q1

REPORT INFORMATION
  Report Type: Report from Study
  Country: GB (occurrence: GB)
  Receive Date: 20180628
  Receipt Date: 20200303
  Transmission Date: 20200409
  Serious: Yes (Life-Threatening, Hospitalization)
  Sender: FDA-Public Use
  Company Number: GB-AMGEN-GBRNI2018086508

PATIENT
  Age: 30 Year
  Sex: Female
  Weight: 46.6 kg

DRUGS (23)
  1. ALLOPURINOL. [Concomitant]
     Active Substance: ALLOPURINOL
     Dosage: 300 MILLIGRAM
     Dates: start: 20180216, end: 20180514
  2. MAGNESIUM ASPARTATE [Concomitant]
     Active Substance: MAGNESIUM ASPARTATE
     Dosage: 10 MILLIEQUIVALENT
     Dates: start: 20180226, end: 20180513
  3. LEVOFLOXACIN. [Concomitant]
     Active Substance: LEVOFLOXACIN
     Dosage: 500 MILLIGRAM
     Dates: start: 20180306, end: 20180514
  4. HARTMANN^S SOLUTION [Concomitant]
     Active Substance: CALCIUM CHLORIDE\POTASSIUM CHLORIDE\SODIUM CHLORIDE\SODIUM LACTATE
     Dosage: 500-1000 MILLILITER
     Dates: start: 20180223, end: 20180223
  5. TRIMETHOPRIM. [Concomitant]
     Active Substance: TRIMETHOPRIM
     Dosage: 80 MILLIGRAM
     Dates: start: 20180220, end: 20180316
  6. PHYTOMENADIONE [Concomitant]
     Active Substance: PHYTONADIONE
     Dosage: 10 MILLIGRAM
     Dates: start: 20180223, end: 20180226
  7. MORPHINE [Concomitant]
     Active Substance: MORPHINE
     Dosage: UNK
  8. SANDO K [Concomitant]
     Dosage: 2 UNK
     Dates: start: 20180226, end: 20180227
  9. PIPERACILLIN. [Concomitant]
     Active Substance: PIPERACILLIN SODIUM
     Dosage: 4 GRAM
     Dates: start: 20180223, end: 20180318
  10. HYDROXYCARBAMIDE [Concomitant]
     Active Substance: HYDROXYUREA
     Dosage: 2000 MILLIGRAM
     Dates: start: 20180313, end: 20180405
  11. ACICLOVIR [Concomitant]
     Active Substance: ACYCLOVIR
     Dosage: 400 MILLIGRAM
     Dates: start: 20180219, end: 20180514
  12. DEXAMETHASONE. [Concomitant]
     Active Substance: DEXAMETHASONE
     Dosage: 3-20 MILLLIGRAM
     Dates: start: 20180220, end: 20180327
  13. POTASSIUM [Concomitant]
     Active Substance: POTASSIUM
     Dosage: 24 MILLIEQUIVALENT
     Dates: start: 20180304, end: 20180304
  14. ZOPICLONE [Concomitant]
     Active Substance: ZOPICLONE
     Dosage: 3.75-7.5 MILLIGRAM
     Dates: start: 20180308, end: 20180316
  15. BLINATUMOMAB [Suspect]
     Active Substance: BLINATUMOMAB
     Indication: ACUTE LYMPHOCYTIC LEUKAEMIA
     Dosage: 13.86 MICROGRAM, QD
     Route: 042
     Dates: start: 20180222, end: 20180321
  16. FOLIC ACID. [Concomitant]
     Active Substance: FOLIC ACID
     Dosage: 5 MILLIGRAM
     Dates: start: 20180220, end: 20180316
  17. PARACETAMOL [Concomitant]
     Active Substance: ACETAMINOPHEN
     Indication: PAIN IN EXTREMITY
     Dosage: 1 GRAM
     Dates: start: 20180215, end: 20180420
  18. MUPIROCIN. [Concomitant]
     Active Substance: MUPIROCIN
     Dosage: 1 UNK
     Route: 045
     Dates: start: 20180220, end: 20180301
  19. SULFAMETHOXAZOLE [Concomitant]
     Active Substance: SULFAMETHOXAZOLE
     Dosage: 400 MILLIGRAM
     Dates: start: 20180220, end: 20180316
  20. AMOXICILLIN. [Concomitant]
     Active Substance: AMOXICILLIN
     Dosage: 500 MILLIGRAM
     Dates: start: 20180220, end: 20180223
  21. CHLORHEXIDINE GLUCONATE. [Concomitant]
     Active Substance: CHLORHEXIDINE GLUCONATE
     Dosage: 1 UNK
     Dates: start: 20180220, end: 20180310
  22. TAZOBACTAM [Concomitant]
     Active Substance: TAZOBACTAM
     Dosage: 500 MILLIGRAM
     Dates: start: 20180223, end: 20180318
  23. RASBURICASE [Concomitant]
     Active Substance: RASBURICASE
     Dosage: 3 MILLIGRAM
     Dates: start: 20180313, end: 20180408

REACTIONS (6)
  - Arthralgia [Recovered/Resolved]
  - Headache [Recovered/Resolved]
  - White blood cell count increased [Recovered/Resolved]
  - Pain in extremity [Recovered/Resolved]
  - Pyrexia [Recovered/Resolved]
  - Pyrexia [Not Recovered/Not Resolved]

NARRATIVE: CASE EVENT DATE: 20180318
